FAERS Safety Report 8484992-X (Version None)
Quarter: 2012Q2

REPORT INFORMATION
  Report Type: 
  Country: None (occurrence: None)
  Receive Date: 20120625
  Receipt Date: 20120615
  Transmission Date: 20120825
  Serious: Yes (Other)
  Sender: FDA-Public Use
  Company Number: AUR-APL-2012-02698

PATIENT
  Age: 66 Year
  Sex: Female
  Weight: 63.49 kg

DRUGS (3)
  1. TRAMADOL HCL [Concomitant]
  2. VENLAFAXINE HCL [Suspect]
     Indication: DEPRESSION
     Dates: start: 20120101, end: 20120501
  3. OMEPRAZOLE [Concomitant]

REACTIONS (4)
  - HORMONE LEVEL ABNORMAL [None]
  - DRUG INEFFECTIVE [None]
  - PERFORMANCE STATUS DECREASED [None]
  - THINKING ABNORMAL [None]
